FAERS Safety Report 7389174-0 (Version None)
Quarter: 2011Q1

REPORT INFORMATION
  Report Type: 
  Country: None (occurrence: None)
  Receive Date: 20110329
  Receipt Date: 20110329
  Transmission Date: 20110831
  Serious: Yes (Other)
  Sender: FDA-Public Use
  Company Number: None

PATIENT
  Age: 55 Year
  Sex: Female
  Weight: 63.5036 kg

DRUGS (2)
  1. ARM + HAMMER TOOTH PASTE W/BAKING SODA + PEROXIDE [Suspect]
     Dosage: PEA SIZE 1 X DAY
     Dates: start: 20110220
  2. ARM + HAMMER TOOTH PASTE W/BAKING SODA + PEROXIDE [Suspect]
     Dosage: PEA SIZE 1 X DAY
     Dates: start: 20110228

REACTIONS (3)
  - SKIN EXFOLIATION [None]
  - HYPOPHAGIA [None]
  - CHEMICAL BURN OF GASTROINTESTINAL TRACT [None]
